FAERS Safety Report 24442163 (Version 3)
Quarter: 2025Q4

REPORT INFORMATION
  Report Type: Spontaneous
  Country: US (occurrence: US)
  Receive Date: 20241016
  Receipt Date: 20251022
  Transmission Date: 20260118
  Serious: No
  Sender: ROCHE
  Company Number: US-ROCHE-3529296

PATIENT
  Sex: Male

DRUGS (3)
  1. HEMLIBRA [Suspect]
     Active Substance: EMICIZUMAB-KXWH
     Indication: Factor VIII deficiency
     Dosage: 105MG/.7ML
     Route: 058
     Dates: start: 202209
  2. HEMLIBRA [Suspect]
     Active Substance: EMICIZUMAB-KXWH
     Dosage: 60MG/0.4 ML
     Route: 058
     Dates: start: 202209
  3. HEMLIBRA [Suspect]
     Active Substance: EMICIZUMAB-KXWH
     Dosage: 165 MG (1.1 ML)
     Route: 058

REACTIONS (3)
  - Procedural haemorrhage [Unknown]
  - Ligament sprain [Unknown]
  - Haemarthrosis [Unknown]
